FAERS Safety Report 24274672 (Version 3)
Quarter: 2024Q4

REPORT INFORMATION
  Report Type: Spontaneous
  Country: CO (occurrence: CO)
  Receive Date: 20240902
  Receipt Date: 20241202
  Transmission Date: 20250115
  Serious: No
  Sender: PFIZER
  Company Number: CO-PFIZER INC-202400243993

PATIENT
  Age: 8 Year
  Sex: Male

DRUGS (1)
  1. GENOTROPIN [Suspect]
     Active Substance: SOMATROPIN
     Dosage: UNK
     Dates: start: 20240801, end: 20240826

REACTIONS (2)
  - Wrong technique in device usage process [Unknown]
  - Device breakage [Unknown]
